FAERS Safety Report 6516895-1 (Version None)
Quarter: 2009Q4

REPORT INFORMATION
  Report Type: 
  Country: None (occurrence: None)
  Receive Date: 20091223
  Receipt Date: 20091215
  Transmission Date: 20100525
  Serious: Yes (Hospitalization)
  Sender: FDA-Public Use
  Company Number: DE-SANOFI-AVENTIS-2009SA009326

PATIENT
  Age: 83 Year
  Sex: Male

DRUGS (9)
  1. ELIGARD [Suspect]
     Indication: DIABETES MELLITUS
     Route: 058
     Dates: start: 20061220, end: 20061220
  2. ELIGARD [Suspect]
     Route: 058
     Dates: start: 20090528, end: 20090528
  3. BICALUTAMIDE [Suspect]
     Indication: PROSTATE CANCER
     Route: 048
     Dates: start: 20061220, end: 20090626
  4. ACETYLSALICYLIC ACID [Concomitant]
     Indication: PROPHYLAXIS
     Route: 065
     Dates: start: 19950601
  5. PENTAERITHRITYL TETRANITRATE [Concomitant]
     Indication: HYPERTENSION
     Route: 065
     Dates: start: 19950601
  6. ALLOPURINOL [Concomitant]
     Dates: start: 19950601
  7. INSULIN [Concomitant]
     Indication: DIABETES MELLITUS
     Route: 058
     Dates: start: 19970301
  8. CANDESARTAN CILEXETIL [Concomitant]
     Indication: HYPERTENSION
     Route: 048
     Dates: start: 20090606
  9. EPOETIN NOS [Concomitant]
     Route: 058
     Dates: start: 20090824

REACTIONS (1)
  - MYOCARDIAL INFARCTION [None]
